FAERS Safety Report 9970813 (Version 1)
Quarter: 2014Q1

REPORT INFORMATION
  Report Type: Report from Study
  Country: US (occurrence: US)
  Receive Date: 20140306
  Receipt Date: 20140306
  Transmission Date: 20141002
  Serious: No
  Sender: FDA-Public Use
  Company Number: US-ABBVIE-13P-163-1151825-00

PATIENT
  Age: 59 Year
  Sex: Female

DRUGS (7)
  1. HUMIRA [Suspect]
     Indication: RHEUMATOID ARTHRITIS
     Route: 058
     Dates: start: 201306
  2. HUMIRA [Suspect]
     Indication: CROHN^S DISEASE
  3. PREDNISONE ACETATE [Concomitant]
     Indication: RHEUMATOID ARTHRITIS
  4. PREDNISONE ACETATE [Concomitant]
     Indication: CROHN^S DISEASE
  5. PROTONIX [Concomitant]
     Indication: CROHN^S DISEASE
  6. CYMBALTA [Concomitant]
     Indication: FIBROMYALGIA
  7. LEVOTHYROXIN [Concomitant]
     Indication: HYPOTHYROIDISM

REACTIONS (5)
  - Pain [Not Recovered/Not Resolved]
  - Oropharyngeal pain [Not Recovered/Not Resolved]
  - Cough [Not Recovered/Not Resolved]
  - Pyrexia [Not Recovered/Not Resolved]
  - Headache [Not Recovered/Not Resolved]
